FAERS Safety Report 5456186-3 (Version None)
Quarter: 2007Q3

REPORT INFORMATION
  Report Type: 
  Country: None (occurrence: None)
  Receive Date: 20070918
  Receipt Date: 20070430
  Transmission Date: 20080115
  Serious: Yes (Other)
  Sender: FDA-Public Use
  Company Number: US-ASTRAZENECA-2006UW24501

PATIENT
  Age: 20328 Day
  Sex: Female
  Weight: 116.8 kg

DRUGS (6)
  1. SEROQUEL [Suspect]
     Indication: BIPOLAR I DISORDER
     Dosage: 100 MG, 400 MG
     Route: 048
     Dates: start: 20030403, end: 20061101
  2. SEROQUEL [Suspect]
     Indication: SCHIZOPHRENIA
     Dosage: 100 MG, 400 MG
     Route: 048
     Dates: start: 20030403, end: 20061101
  3. SEROQUEL [Suspect]
     Indication: BIPOLAR DISORDER
     Dosage: 100 MG, 400 MG
     Route: 048
     Dates: start: 20030403, end: 20061101
  4. ZYPREXA [Concomitant]
     Dates: start: 20040301
  5. LITHIUM [Concomitant]
     Dates: start: 20040301
  6. FEN PHEN [Concomitant]
     Dates: start: 19960702, end: 19970302

REACTIONS (3)
  - BLOOD CHOLESTEROL INCREASED [None]
  - DIABETES MELLITUS [None]
  - DIABETIC KETOACIDOSIS [None]
